FAERS Safety Report 8558264-9 (Version None)
Quarter: 2012Q3

REPORT INFORMATION
  Report Type: 
  Country: None (occurrence: None)
  Receive Date: 20120727
  Receipt Date: 20120727
  Transmission Date: 20120928
  Serious: No
  Sender: FDA-Public Use
  Company Number: None

PATIENT
  Age: 63 Year
  Sex: Female
  Weight: 96 kg

DRUGS (1)
  1. PRECEDEX [Suspect]
     Indication: SEDATIVE THERAPY
     Dosage: 0.2 MG/KG/HR IV CONTINUOUS
     Route: 042

REACTIONS (1)
  - BRADYCARDIA [None]
